FAERS Safety Report 4277735-7 (Version None)
Quarter: 2004Q1

REPORT INFORMATION
  Report Type: 
  Country: None (occurrence: None)
  Receive Date: 20040121
  Receipt Date: 20040119
  Transmission Date: 20041129
  Serious: Yes (Hospitalization)
  Sender: FDA-Public Use
  Company Number: 200310064BYL

PATIENT
  Age: 60 Year
  Sex: Male
  Weight: 74 kg

DRUGS (6)
  1. CIPROXAN IV (CIPROLOXACIN LACTATE) [Suspect]
     Indication: INTERSTITIAL LUNG DISEASE
     Dosage: 600 MG, TOTAL DAILY, INTRAVENOUS DRIP
     Dates: start: 20030214, end: 20030217
  2. MEROPEN [Concomitant]
  3. PENTICILLIN [Concomitant]
  4. MUCODYNE [Concomitant]
  5. CLARITHROMYCIN [Concomitant]
  6. DASEN [Concomitant]

REACTIONS (3)
  - CONDITION AGGRAVATED [None]
  - INTERSTITIAL LUNG DISEASE [None]
  - PO2 DECREASED [None]
